FAERS Safety Report 4961866-X (Version None)
Quarter: 2006Q2

REPORT INFORMATION
  Report Type: 
  Country: None (occurrence: None)
  Receive Date: 20060404
  Receipt Date: 20060327
  Transmission Date: 20061013
  Serious: Yes (Hospitalization)
  Sender: FDA-Public Use
  Company Number: US-AVENTIS-200612961US

PATIENT
  Sex: Female

DRUGS (3)
  1. KETEK [Suspect]
     Indication: SINUSITIS
     Route: 048
     Dates: start: 20060217, end: 20060308
  2. ADVAIR DISKUS 100/50 [Concomitant]
     Dosage: DOSE: UNK
  3. ALBUTEROL [Concomitant]
     Dosage: DOSE: UNK

REACTIONS (7)
  - BLOOD BILIRUBIN INCREASED [None]
  - HEPATITIS [None]
  - HEPATOCELLULAR DAMAGE [None]
  - JAUNDICE [None]
  - LIVER FUNCTION TEST ABNORMAL [None]
  - MALAISE [None]
  - WHITE BLOOD CELL COUNT INCREASED [None]
